FAERS Safety Report 5915462-8 (Version None)
Quarter: 2008Q4

REPORT INFORMATION
  Report Type: 
  Country: None (occurrence: None)
  Receive Date: 20081009
  Receipt Date: 20081009
  Transmission Date: 20090506
  Serious: No
  Sender: FDA-Public Use
  Company Number: None

PATIENT
  Age: 49 Year
  Sex: Male
  Weight: 86.1834 kg

DRUGS (2)
  1. KEPPRA [Suspect]
     Indication: EPILEPSY
     Dosage: 250MG  2XDAILY PO
     Route: 048
     Dates: start: 20050301, end: 20060101
  2. ALLERGY MEDICINE KIRKLAND [Suspect]
     Indication: MULTIPLE ALLERGIES
     Dosage: 2 TABLETS PO
     Route: 048
     Dates: start: 20050611, end: 20050611

REACTIONS (9)
  - ANXIETY [None]
  - BRAIN INJURY [None]
  - DEPRESSION [None]
  - DISTURBANCE IN ATTENTION [None]
  - GAIT DISTURBANCE [None]
  - IMPAIRED WORK ABILITY [None]
  - MENTAL DISORDER [None]
  - SHOCK [None]
  - STRESS [None]
